FAERS Safety Report 20564658 (Version 1)
Quarter: 2022Q1

REPORT INFORMATION
  Report Type: Spontaneous
  Country: US (occurrence: US)
  Receive Date: 20220308
  Receipt Date: 20220308
  Transmission Date: 20220423
  Serious: Yes (Hospitalization, Other)
  Sender: FDA-Public Use
  Company Number: US-AVEO ONCOLOGY-2022-AVEO-US000008

PATIENT

DRUGS (16)
  1. FOTIVDA [Suspect]
     Active Substance: TIVOZANIB HYDROCHLORIDE
     Indication: Renal cell carcinoma
     Dosage: 1.34 1 CAPSULE PO QD X 21D ON THEN 7D OFF
     Route: 048
     Dates: start: 20220103, end: 20220217
  2. AMLODIPINE BESYLATE [Concomitant]
     Active Substance: AMLODIPINE BESYLATE
  3. ASPIRIN [Concomitant]
     Active Substance: ASPIRIN
     Dosage: 81 MG
  4. CLONIDINE [Concomitant]
     Active Substance: CLONIDINE
  5. ATORVASTATIN CALCIUM [Concomitant]
     Active Substance: ATORVASTATIN CALCIUM
  6. ENALAPRIL [Concomitant]
     Active Substance: ENALAPRIL
  7. HYDROCODONE BITARTRATE AND ACETAMINOPHEN [Concomitant]
     Active Substance: ACETAMINOPHEN\HYDROCODONE BITARTRATE
  8. IMODIUM AD [Concomitant]
     Active Substance: LOPERAMIDE HYDROCHLORIDE
  9. LOMOTIL [Concomitant]
     Active Substance: ATROPINE SULFATE\DIPHENOXYLATE HYDROCHLORIDE
  10. PROMETHAZINE HYDROCHLORIDE [Concomitant]
     Active Substance: PROMETHAZINE HYDROCHLORIDE
  11. MINERALS\VITAMINS [Concomitant]
     Active Substance: MINERALS\VITAMINS
  12. VITAMIN B [Concomitant]
     Active Substance: VITAMIN B
  13. PHENERGAN [Concomitant]
     Active Substance: PROMETHAZINE HYDROCHLORIDE
  14. METOPROLOL [Concomitant]
     Active Substance: METOPROLOL
  15. NORCO [Concomitant]
     Active Substance: ACETAMINOPHEN\HYDROCODONE BITARTRATE
  16. ADENOSINE [Concomitant]
     Active Substance: ADENOSINE

REACTIONS (14)
  - Supraventricular tachycardia [Recovered/Resolved]
  - Metastases to spine [Unknown]
  - Diarrhoea [Unknown]
  - Fatigue [Unknown]
  - Decreased appetite [Unknown]
  - Blood pressure increased [Unknown]
  - Feeling jittery [Unknown]
  - Hot flush [Unknown]
  - Weight decreased [Unknown]
  - Back pain [Not Recovered/Not Resolved]
  - Gait disturbance [Recovered/Resolved]
  - Hepatic lesion [Not Recovered/Not Resolved]
  - Bone lesion [Not Recovered/Not Resolved]
  - Cholelithiasis [Not Recovered/Not Resolved]

NARRATIVE: CASE EVENT DATE: 20220105
